FAERS Safety Report 6213105-X (Version None)
Quarter: 2009Q2

REPORT INFORMATION
  Report Type: 
  Country: None (occurrence: None)
  Receive Date: 20090603
  Receipt Date: 20090525
  Transmission Date: 20091009
  Serious: Yes (Death)
  Sender: FDA-Public Use
  Company Number: B0544056A

PATIENT
  Sex: Male

DRUGS (7)
  1. KIVEXA [Suspect]
     Indication: HIV INFECTION
     Route: 048
     Dates: start: 20060116, end: 20080324
  2. TRIZIVIR [Suspect]
     Indication: HIV INFECTION
     Route: 048
     Dates: start: 20040914, end: 20060116
  3. COMBIVIR [Suspect]
     Indication: HIV INFECTION
     Route: 048
     Dates: start: 20001018, end: 20040914
  4. NORVIR [Suspect]
     Indication: HIV INFECTION
     Route: 048
     Dates: start: 20050829, end: 20080324
  5. REYATAZ [Suspect]
     Indication: HIV INFECTION
     Route: 048
     Dates: start: 20060116, end: 20080324
  6. KALETRA [Suspect]
     Indication: HIV INFECTION
     Route: 048
     Dates: start: 20040309, end: 20050606
  7. AGENERASE [Suspect]
     Indication: HIV INFECTION
     Route: 065
     Dates: start: 20021215, end: 20040309

REACTIONS (3)
  - DEATH [None]
  - GASTROINTESTINAL DISORDER [None]
  - VIROLOGIC FAILURE [None]
